FAERS Safety Report 6198373-5 (Version None)
Quarter: 2009Q2

REPORT INFORMATION
  Report Type: 
  Country: None (occurrence: None)
  Receive Date: 20090521
  Receipt Date: 20090513
  Transmission Date: 20091009
  Serious: Yes (Hospitalization, Other)
  Sender: FDA-Public Use
  Company Number: US-JNJFOC-20090104387

PATIENT
  Sex: Male
  Weight: 82.1 kg

DRUGS (16)
  1. REMICADE [Suspect]
     Route: 042
  2. REMICADE [Suspect]
     Indication: CROHN'S DISEASE
     Route: 042
  3. TOPROL-XL [Concomitant]
  4. LIPITOR [Concomitant]
  5. NEXIUM [Concomitant]
  6. CYMBALTA [Concomitant]
  7. AMBIEN CR [Concomitant]
  8. ZYRTEC [Concomitant]
  9. GLIPIZIDE AND METFORMIN HCL [Concomitant]
  10. MAGNESIUM GLUCONATE [Concomitant]
  11. LIQUID IRON [Concomitant]
  12. ISOSORBIDE MONONITRATE [Concomitant]
  13. PLAVIX [Concomitant]
  14. DEPO-TESTOSTERONE [Concomitant]
  15. JANUVIA [Concomitant]
  16. AMLODIPINE [Concomitant]

REACTIONS (3)
  - CROHN'S DISEASE [None]
  - HYPERKALAEMIA [None]
  - OSTEOARTHRITIS [None]
